FAERS Safety Report 11860787 (Version 1)
Quarter: 2015Q4

REPORT INFORMATION
  Report Type: Report from Study
  Country: AR (occurrence: AR)
  Receive Date: 20151222
  Receipt Date: 20151222
  Transmission Date: 20160305
  Serious: Yes (Other)
  Sender: FDA-Public Use
  Company Number: PHHY2015AR166904

PATIENT
  Sex: Male

DRUGS (1)
  1. DIOVAN [Suspect]
     Active Substance: VALSARTAN
     Indication: HYPERTENSION
     Dosage: 160 OT (UNITS WERE NOT REPORTED), UNK
     Route: 065
     Dates: start: 2009

REACTIONS (2)
  - Carotid artery thrombosis [Recovering/Resolving]
  - Carotid artery occlusion [Recovering/Resolving]
